FAERS Safety Report 18980026 (Version 1)
Quarter: 2021Q1

REPORT INFORMATION
  Report Type: Other
  Country: FR (occurrence: FR)
  Receive Date: 20210308
  Receipt Date: 20210308
  Transmission Date: 20210420
  Serious: Yes (Other)
  Sender: FDA-Public Use
  Company Number: FR-ROCHE-2780854

PATIENT
  Sex: Male

DRUGS (14)
  1. TACROLIMUS. [Suspect]
     Active Substance: TACROLIMUS
     Indication: PROPHYLAXIS AGAINST TRANSPLANT REJECTION
     Dosage: PLASMA LEVELS AT 10?15 NG/ML
     Route: 065
  2. OLANZAPINE. [Concomitant]
     Active Substance: OLANZAPINE
  3. METHYLPREDNISOLONE. [Suspect]
     Active Substance: METHYLPREDNISOLONE
     Indication: PROPHYLAXIS AGAINST TRANSPLANT REJECTION
     Dosage: 25 DOSES ON DAY 1 OF 250 MG, DAY 3 OF 125 MG, DAY 4 OF 125 MG, ON DAY 7?24 OF 20 MG AND DAY 25?28 OF
     Route: 042
  4. PREDNISOLONE. [Suspect]
     Active Substance: PREDNISOLONE
     Indication: PROPHYLAXIS AGAINST TRANSPLANT REJECTION
     Route: 048
  5. ANTITHYMOCYTE IMMUNOGLOBULIN [Suspect]
     Active Substance: THYMOCYTE IMMUNE GLOBULIN NOS
     Indication: PROPHYLAXIS AGAINST TRANSPLANT REJECTION
     Dosage: ON DAY 3, 4, 5, 6, AND 7 AFTER THE RETRANSPLANTATION
     Route: 065
  6. BELIMUMAB [Suspect]
     Active Substance: BELIMUMAB
     Indication: PROPHYLAXIS AGAINST TRANSPLANT REJECTION
     Dosage: ON DAY 1 OF 520 MG, ON DAY 8 OF 750 MG, ON DAY 15 OF 750 MG AND DAY 22 OF 800 MG
     Route: 042
  7. ECULIZUMAB [Suspect]
     Active Substance: ECULIZUMAB
     Indication: PROPHYLAXIS AGAINST TRANSPLANT REJECTION
     Dosage: ON DAY 6
     Route: 042
  8. SULFAMETHOXAZOLE/TRIMETHOPRIM [Concomitant]
     Active Substance: SULFAMETHOXAZOLE\TRIMETHOPRIM
     Indication: PROPHYLAXIS
  9. HALOPERIDOL. [Concomitant]
     Active Substance: HALOPERIDOL
  10. SERTRALINE [Concomitant]
     Active Substance: SERTRALINE HYDROCHLORIDE
  11. VALGANCICLOVIR. [Concomitant]
     Active Substance: VALGANCICLOVIR
     Indication: PROPHYLAXIS
  12. RITUXIMAB. [Suspect]
     Active Substance: RITUXIMAB
     Indication: PROPHYLAXIS AGAINST TRANSPLANT REJECTION
     Dosage: ON DAY ?20 OF 600 MG, DAY 7 OF 600 MG, DAY 14 OF 500 MG AND DAY 21 OF 500 MG
     Route: 042
  13. MYCOPHENOLATE MOFETIL. [Suspect]
     Active Substance: MYCOPHENOLATE MOFETIL
     Indication: PROPHYLAXIS AGAINST TRANSPLANT REJECTION
     Dosage: AREA UNDER THE CURVE AT 40?60 NG/ML
     Route: 065
  14. DIAZEPAM. [Concomitant]
     Active Substance: DIAZEPAM

REACTIONS (10)
  - Oesophageal disorder [Unknown]
  - Diarrhoea [Unknown]
  - Pancytopenia [Unknown]
  - Stoma site infection [Unknown]
  - Cytomegalovirus oesophagitis [Unknown]
  - Pneumonia aspiration [Unknown]
  - Oesophageal achalasia [Unknown]
  - Gastroenteritis norovirus [Unknown]
  - Cardiac arrest [Unknown]
  - Weight decreased [Unknown]
